FAERS Safety Report 18260100 (Version 1)
Quarter: 2020Q3

REPORT INFORMATION
  Report Type: Spontaneous
  Country: CH (occurrence: CH)
  Receive Date: 20200913
  Receipt Date: 20200913
  Transmission Date: 20201103
  Serious: Yes (Other)
  Sender: FDA-Public Use
  Company Number: NVSC2020CH246181

PATIENT
  Age: 71 Year
  Sex: Female

DRUGS (7)
  1. IMATINIB. [Suspect]
     Active Substance: IMATINIB MESYLATE
     Indication: ACUTE MYELOID LEUKAEMIA
     Dosage: 140 MG, QD (FROM DAY 3 AFTER DAUNORUBICIN)
     Route: 065
  2. DAUNORUBICIN [Suspect]
     Active Substance: DAUNORUBICIN
     Indication: ACUTE MYELOID LEUKAEMIA
     Dosage: 60 MG/M2 (DAYS 1,2 AND 3)
     Route: 065
  3. CYTARABINE. [Suspect]
     Active Substance: CYTARABINE
     Indication: ACUTE MYELOID LEUKAEMIA
     Dosage: 200 MG/M2 (DAYS 1?7)
     Route: 065
  4. DASATINIB. [Suspect]
     Active Substance: DASATINIB
     Indication: ACUTE MYELOID LEUKAEMIA
     Dosage: 140 MG, QD (FROM DAY 3 AFTER DAUNORUBICIN)
     Route: 065
  5. HYDROCORTISONE. [Suspect]
     Active Substance: HYDROCORTISONE
     Indication: ACUTE MYELOID LEUKAEMIA
     Dosage: UNK
     Route: 037
  6. CYTARABINE. [Suspect]
     Active Substance: CYTARABINE
     Dosage: UNK
     Route: 037
  7. METHOTREXATE. [Suspect]
     Active Substance: METHOTREXATE
     Indication: ACUTE MYELOID LEUKAEMIA
     Dosage: UNK
     Route: 037

REACTIONS (2)
  - Neutropenia [Unknown]
  - Product use in unapproved indication [Unknown]
